FAERS Safety Report 11810918 (Version 1)
Quarter: 2015Q4

REPORT INFORMATION
  Report Type: Spontaneous
  Country: US (occurrence: None)
  Receive Date: 20151207
  Receipt Date: 20151207
  Transmission Date: 20160305
  Serious: No
  Sender: FDA-Public Use
  Company Number: None

PATIENT
  Age: 57 Year
  Sex: Female

DRUGS (16)
  1. OXYBUTYNIN [Concomitant]
     Active Substance: OXYBUTYNIN
  2. MODAFINIL. [Concomitant]
     Active Substance: MODAFINIL
  3. LOSARTAN. [Concomitant]
     Active Substance: LOSARTAN
  4. GABAPENTIN. [Concomitant]
     Active Substance: GABAPENTIN
  5. TRAZODONE [Concomitant]
     Active Substance: TRAZODONE HYDROCHLORIDE
  6. AMANTADINE [Concomitant]
     Active Substance: AMANTADINE
  7. AMPYRA [Suspect]
     Active Substance: DALFAMPRIDINE
     Indication: MULTIPLE SCLEROSIS
     Route: 048
     Dates: start: 20110609
  8. AVONEX [Concomitant]
     Active Substance: INTERFERON BETA-1A
  9. DULERA [Concomitant]
     Active Substance: FORMOTEROL FUMARATE DIHYDRATE\MOMETASONE FUROATE
  10. LANTUS [Concomitant]
     Active Substance: INSULIN GLARGINE
  11. ESTRADIOL. [Concomitant]
     Active Substance: ESTRADIOL
  12. ATORVASTATIN [Concomitant]
     Active Substance: ATORVASTATIN
  13. CYMBALTA [Concomitant]
     Active Substance: DULOXETINE HYDROCHLORIDE
  14. HUMALOG [Concomitant]
     Active Substance: INSULIN LISPRO
  15. GLIPIZIDE. [Concomitant]
     Active Substance: GLIPIZIDE
  16. METFORMIN [Concomitant]
     Active Substance: METFORMIN HYDROCHLORIDE

REACTIONS (2)
  - Urinary incontinence [None]
  - Culture urine positive [None]

NARRATIVE: CASE EVENT DATE: 20151203
